FAERS Safety Report 8614411-1 (Version None)
Quarter: 2012Q3

REPORT INFORMATION
  Report Type: 
  Country: None (occurrence: None)
  Receive Date: 20120823
  Receipt Date: 20120809
  Transmission Date: 20120928
  Serious: No
  Sender: FDA-Public Use
  Company Number: US-JNJFOC-20120805215

PATIENT
  Sex: Female

DRUGS (6)
  1. FENTANYL-100 [Suspect]
     Route: 062
     Dates: start: 20120501, end: 20120101
  2. FENTANYL-100 [Suspect]
     Route: 062
     Dates: start: 20120101
  3. FENTANYL-100 [Suspect]
     Indication: MULTIPLE SCLEROSIS
     Route: 062
     Dates: start: 20120101
  4. FENTANYL-100 [Suspect]
     Route: 062
     Dates: start: 20120101
  5. FENTANYL-100 [Suspect]
     Route: 062
     Dates: start: 20120501, end: 20120101
  6. FENTANYL-100 [Suspect]
     Indication: HERNIA
     Route: 062
     Dates: start: 20120101

REACTIONS (4)
  - DRUG INEFFECTIVE [None]
  - WRONG TECHNIQUE IN DRUG USAGE PROCESS [None]
  - PRODUCT QUALITY ISSUE [None]
  - TREATMENT NONCOMPLIANCE [None]
